FAERS Safety Report 7777697-1 (Version None)
Quarter: 2011Q3

REPORT INFORMATION
  Report Type: 
  Country: None (occurrence: None)
  Receive Date: 20110922
  Receipt Date: 20110914
  Transmission Date: 20111222
  Serious: Yes (Congenital Anomaly)
  Sender: FDA-Public Use
  Company Number: 1000023870

PATIENT
  Sex: Male

DRUGS (1)
  1. CELEXA [Suspect]
     Dosage: (20 MG), TRANSPLACENTAL
     Route: 064
     Dates: start: 20100801, end: 20110428

REACTIONS (3)
  - SPINA BIFIDA [None]
  - TALIPES [None]
  - MATERNAL DRUGS AFFECTING FOETUS [None]
